FAERS Safety Report 8828650 (Version 1)
Quarter: 2012Q4

REPORT INFORMATION
  Report Type: 
  Country: US (occurrence: US)
  Receive Date: 20121005
  Receipt Date: 20121005
  Transmission Date: 20130627
  Serious: Yes (Other)
  Sender: FDA-Public Use
  Company Number: US-INCYTE CORPORATION-2012IN001934

PATIENT
  Age: 75 Year
  Sex: Female

DRUGS (4)
  1. JAKAFI [Suspect]
     Indication: MYELOFIBROSIS
     Dosage: 20 mg, bid
     Route: 048
  2. METFORMIN [Concomitant]
     Dosage: 500 mg, bid
  3. TRIAMTERENE/HCTZ [Concomitant]
     Dosage: 25 mg, qd
  4. SERTRALINE [Concomitant]
     Dosage: 25 mg, q hs

REACTIONS (4)
  - Eye haemorrhage [Unknown]
  - Weight increased [Not Recovered/Not Resolved]
  - Arthralgia [Not Recovered/Not Resolved]
  - Blood glucose abnormal [Unknown]
